FAERS Safety Report 7971336-2 (Version None)
Quarter: 2011Q4

REPORT INFORMATION
  Report Type: 
  Country: None (occurrence: None)
  Receive Date: 20111212
  Receipt Date: 20111205
  Transmission Date: 20120403
  Serious: Yes (Other)
  Sender: FDA-Public Use
  Company Number: GB-PFIZER INC-2010006430

PATIENT
  Sex: Female

DRUGS (1)
  1. ZYVOX [Suspect]
     Indication: WOUND INFECTION STAPHYLOCOCCAL
     Dosage: 600 MG, 2X/DAY
     Route: 048
     Dates: start: 20090201, end: 20091001

REACTIONS (8)
  - BLINDNESS UNILATERAL [None]
  - VISION BLURRED [None]
  - VOCAL CORD PARALYSIS [None]
  - NEUROPATHY PERIPHERAL [None]
  - PARAESTHESIA [None]
  - BONE MARROW FAILURE [None]
  - OFF LABEL USE [None]
  - ANAEMIA [None]
